FAERS Safety Report 9269138 (Version 1)
Quarter: 2013Q2

REPORT INFORMATION
  Report Type: Spontaneous
  Country: US (occurrence: US)
  Receive Date: 20130503
  Receipt Date: 20130503
  Transmission Date: 20140414
  Serious: No
  Sender: FDA-Public Use
  Company Number: US-009507513-1304USA016668

PATIENT
  Sex: 0
  Weight: 64.4 kg

DRUGS (1)
  1. NEXPLANON [Suspect]
     Dosage: UNK
     Route: 059
     Dates: start: 20130423

REACTIONS (3)
  - Device difficult to use [Unknown]
  - Device deployment issue [Unknown]
  - No adverse event [Unknown]
